FAERS Safety Report 7364830-9 (Version None)
Quarter: 2011Q1

REPORT INFORMATION
  Report Type: 
  Country: None (occurrence: None)
  Receive Date: 20110321
  Receipt Date: 20110315
  Transmission Date: 20110831
  Serious: Yes (Life-Threatening)
  Sender: FDA-Public Use
  Company Number: PHHY2011IL21878

PATIENT
  Age: 33 Year
  Sex: Male
  Weight: 40 kg

DRUGS (1)
  1. EXJADE [Suspect]
     Indication: IRON OVERLOAD
     Dosage: 40 MG/KG, UNK

REACTIONS (2)
  - HEPATIC NEOPLASM MALIGNANT [None]
  - METASTASES TO LUNG [None]
